FAERS Safety Report 18703427 (Version 4)
Quarter: 2021Q1

REPORT INFORMATION
  Report Type: Spontaneous
  Country: GB (occurrence: IS)
  Receive Date: 20210105
  Receipt Date: 20210121
  Transmission Date: 20210419
  Serious: Yes (Other)
  Sender: FDA-Public Use
  Company Number: GB-PFIZER INC-2020515036

PATIENT
  Age: 53 Year
  Sex: Male

DRUGS (2)
  1. NOREPINEPHRINE BITARTRATE. [Suspect]
     Active Substance: NOREPINEPHRINE BITARTRATE
     Dosage: 0.02 UG/KG/MIN
  2. NOREPINEPHRINE BITARTRATE. [Suspect]
     Active Substance: NOREPINEPHRINE BITARTRATE
     Indication: HYPOTENSION
     Dosage: 5 MG (INJECTED INTO THE REMAINING 500 ML OF CRYSTALLOID IN THE BAG)

REACTIONS (3)
  - Product label issue [Unknown]
  - Cardiac arrest [Recovered/Resolved]
  - Accidental overdose [Unknown]
